FAERS Safety Report 24014001 (Version 2)
Quarter: 2024Q3

REPORT INFORMATION
  Report Type: Spontaneous
  Country: UA (occurrence: UA)
  Receive Date: 20240626
  Receipt Date: 20240710
  Transmission Date: 20241016
  Serious: Yes (Hospitalization)
  Sender: TEVA
  Company Number: UA-TEVA-VS-3212520

PATIENT
  Age: 72 Year
  Sex: Male

DRUGS (6)
  1. METOCLOPRAMIDE [Suspect]
     Active Substance: METOCLOPRAMIDE
     Indication: Leptospirosis
     Route: 065
  2. FUROSEMIDE [Suspect]
     Active Substance: FUROSEMIDE
     Indication: Leptospirosis
     Route: 065
  3. LACTULOSE [Suspect]
     Active Substance: LACTULOSE
     Indication: Leptospirosis
     Route: 048
  4. DEXAMETHASONE [Suspect]
     Active Substance: DEXAMETHASONE
     Indication: Leptospirosis
     Route: 065
  5. PENICILLIN G [Suspect]
     Active Substance: PENICILLIN G
     Indication: Leptospirosis
     Dosage: 2000000U; 8 TIMES PER DAY
     Route: 065
  6. ACETAMINOPHEN [Suspect]
     Active Substance: ACETAMINOPHEN
     Indication: Leptospirosis
     Route: 065

REACTIONS (2)
  - Drug ineffective [Unknown]
  - Jarisch-Herxheimer reaction [Recovering/Resolving]
